FAERS Safety Report 22323344 (Version 3)
Quarter: 2023Q2

REPORT INFORMATION
  Report Type: Spontaneous
  Country: CA (occurrence: CA)
  Receive Date: 20230516
  Receipt Date: 20230622
  Transmission Date: 20230722
  Serious: Yes (Other)
  Sender: FDA-Public Use
  Company Number: CA-CELLTRION INC.-2023CA009885

PATIENT

DRUGS (3)
  1. INFLECTRA [Suspect]
     Active Substance: INFLIXIMAB-DYYB
     Indication: Colitis ulcerative
     Dosage: 5 MG/KG, EVERY 8 WEEKS
     Route: 042
     Dates: start: 20230503
  2. INFLECTRA [Suspect]
     Active Substance: INFLIXIMAB-DYYB
     Dosage: 5 MG/KG, EVERY 8 WEEKS
     Route: 042
     Dates: start: 20230517
  3. INFLECTRA [Suspect]
     Active Substance: INFLIXIMAB-DYYB
     Dosage: 330 MG AFTER 4 WEEKS
     Route: 042
     Dates: start: 20230614

REACTIONS (5)
  - Condition aggravated [Recovering/Resolving]
  - Off label use [Unknown]
  - Liver disorder [Not Recovered/Not Resolved]
  - Vascular shunt [Not Recovered/Not Resolved]
  - Faecal calprotectin increased [Unknown]

NARRATIVE: CASE EVENT DATE: 20230614
